FAERS Safety Report 10180375 (Version 1)
Quarter: 2014Q2

REPORT INFORMATION
  Report Type: Spontaneous
  Country: US (occurrence: US)
  Receive Date: 20140519
  Receipt Date: 20140519
  Transmission Date: 20141212
  Serious: No
  Sender: FDA-Public Use
  Company Number: US-AMGEN INC.-USASP2013079444

PATIENT
  Age: 70 Year
  Sex: Female

DRUGS (6)
  1. PROLIA [Suspect]
     Indication: OSTEOPOROSIS
     Dosage: UNK
     Route: 065
     Dates: start: 201304
  2. FISH OIL [Concomitant]
     Dosage: UNK
     Route: 065
  3. VITAMIN D                          /00107901/ [Concomitant]
     Dosage: UNK
     Route: 065
  4. CALCIUM [Concomitant]
     Dosage: UNK
     Route: 065
  5. COQ10                              /00517201/ [Concomitant]
     Dosage: UNK
     Route: 065
  6. XANAX [Concomitant]
     Indication: SLEEP DISORDER
     Dosage: UNK UNK, AS NECESSARY
     Route: 065

REACTIONS (6)
  - Dizziness [Unknown]
  - Peripheral swelling [Recovered/Resolved]
  - Arthritis [Recovered/Resolved]
  - Thyroid disorder [Unknown]
  - Malaise [Unknown]
  - Joint swelling [Recovered/Resolved]
